FAERS Safety Report 11194343 (Version 3)
Quarter: 2017Q1

REPORT INFORMATION
  Report Type: Spontaneous
  Country: US (occurrence: US)
  Receive Date: 20150616
  Receipt Date: 20170307
  Transmission Date: 20170428
  Serious: Yes (Hospitalization, Other)
  Sender: FDA-Public Use
  Company Number: US-ELI_LILLY_AND_COMPANY-US201506004194

PATIENT
  Age: 51 Year
  Sex: Female

DRUGS (2)
  1. CYMBALTA [Suspect]
     Active Substance: DULOXETINE HYDROCHLORIDE
     Dosage: 60 MG, BID
     Dates: end: 20120509
  2. CYMBALTA [Suspect]
     Active Substance: DULOXETINE HYDROCHLORIDE
     Indication: PRODUCT USED FOR UNKNOWN INDICATION
     Dosage: 30 MG, TID
     Route: 065
     Dates: start: 20080306, end: 20120509

REACTIONS (20)
  - Sensory disturbance [Unknown]
  - Dysphoria [Unknown]
  - Vomiting [Unknown]
  - Psychotic disorder [Recovered/Resolved]
  - Nausea [Unknown]
  - Visual impairment [Unknown]
  - Insomnia [Unknown]
  - Somatic delusion [Recovered/Resolved]
  - Affect lability [Unknown]
  - Anal incontinence [Unknown]
  - Suicidal ideation [Unknown]
  - Drug withdrawal syndrome [Unknown]
  - Depression [Unknown]
  - Paraesthesia [Unknown]
  - Headache [Unknown]
  - Diarrhoea [Unknown]
  - Irritability [Unknown]
  - Dizziness [Unknown]
  - Anxiety [Unknown]
  - Fatigue [Unknown]

NARRATIVE: CASE EVENT DATE: 201205
